FAERS Safety Report 5092028-6 (Version None)
Quarter: 2006Q3

REPORT INFORMATION
  Report Type: 
  Country: None (occurrence: None)
  Receive Date: 20060825
  Receipt Date: 20060814
  Transmission Date: 20061208
  Serious: Yes (Other)
  Sender: FDA-Public Use
  Company Number: 2006099833

PATIENT
  Age: 32 Year
  Sex: Female

DRUGS (3)
  1. ZITHROMAX [Suspect]
     Indication: NASOPHARYNGITIS
     Dosage: 500 MG, ORAL
     Route: 048
     Dates: start: 20060810, end: 20060812
  2. ZITHROMAX [Suspect]
     Indication: TONSILLITIS
     Dosage: 500 MG, ORAL
     Route: 048
     Dates: start: 20060810, end: 20060812
  3. MARCUMAR [Concomitant]

REACTIONS (1)
  - METRORRHAGIA [None]
